FAERS Safety Report 8809563 (Version 2)
Quarter: 2015Q1

REPORT INFORMATION
  Report Type: Report from Study
  Country: US (occurrence: US)
  Receive Date: 20120926
  Receipt Date: 20150326
  Transmission Date: 20150721
  Serious: Yes (Death)
  Sender: FDA-Public Use
  Company Number: US-ROCHE-1125971

PATIENT
  Sex: Female
  Weight: 65.45 kg

DRUGS (18)
  1. TAXOTERE [Concomitant]
     Active Substance: DOCETAXEL
     Route: 065
     Dates: start: 20071231
  2. ATIVAN [Concomitant]
     Active Substance: LORAZEPAM
  3. AVASTIN [Suspect]
     Active Substance: BEVACIZUMAB
     Route: 042
     Dates: start: 20080714
  4. ZOMETA [Concomitant]
     Active Substance: ZOLEDRONIC ACID
     Route: 065
  5. PROCRIT [Concomitant]
     Active Substance: ERYTHROPOIETIN
  6. AVASTIN [Suspect]
     Active Substance: BEVACIZUMAB
     Route: 042
     Dates: start: 20080804
  7. AVASTIN [Suspect]
     Active Substance: BEVACIZUMAB
     Route: 042
     Dates: start: 20080825
  8. DEXTROMETHORPHAN [Concomitant]
     Active Substance: DEXTROMETHORPHAN
     Route: 065
  9. AVASTIN [Suspect]
     Active Substance: BEVACIZUMAB
     Route: 042
     Dates: start: 20080915
  10. NEULASTA [Suspect]
     Active Substance: PEGFILGRASTIM
     Indication: PRODUCT USED FOR UNKNOWN INDICATION
     Route: 065
  11. RECLAST [Concomitant]
     Active Substance: ZOLEDRONIC ACID
     Route: 065
  12. BENADRYL [Concomitant]
     Active Substance: DIPHENHYDRAMINE HYDROCHLORIDE
     Route: 042
  13. ALOXI [Concomitant]
     Active Substance: PALONOSETRON HYDROCHLORIDE
     Route: 042
  14. ANZEMET [Concomitant]
     Active Substance: DOLASETRON MESYLATE
  15. AVASTIN [Suspect]
     Active Substance: BEVACIZUMAB
     Indication: GENITAL NEOPLASM MALIGNANT FEMALE
     Route: 042
     Dates: start: 20080626
  16. DECADRON [Concomitant]
     Active Substance: DEXAMETHASONE
     Route: 065
  17. AVASTIN [Suspect]
     Active Substance: BEVACIZUMAB
     Route: 042
     Dates: start: 20081006
  18. DOCETAXEL. [Concomitant]
     Active Substance: DOCETAXEL
     Route: 042

REACTIONS (12)
  - Pain [Unknown]
  - Sinus congestion [Recovering/Resolving]
  - Disease progression [Unknown]
  - Abdominal distension [Unknown]
  - Death [Fatal]
  - Musculoskeletal discomfort [Unknown]
  - Bone pain [Unknown]
  - Oropharyngeal pain [Recovering/Resolving]
  - Ear discomfort [Recovering/Resolving]
  - Nausea [Unknown]
  - Vomiting [Unknown]
  - Off label use [Unknown]
